FAERS Safety Report 24318711 (Version 3)
Quarter: 2025Q4

REPORT INFORMATION
  Report Type: Report from Study
  Country: JP (occurrence: JP)
  Receive Date: 20240913
  Receipt Date: 20251212
  Transmission Date: 20260118
  Serious: Yes (Other)
  Sender: PFIZER
  Company Number: JP-PFIZER INC-PV202400102086

PATIENT
  Age: 63 Year
  Sex: Female

DRUGS (2)
  1. ELRANATAMAB [Suspect]
     Active Substance: ELRANATAMAB
     Dosage: 12 MG, SINGLE
     Route: 058
     Dates: start: 20240729
  2. ELRANATAMAB [Suspect]
     Active Substance: ELRANATAMAB
     Dosage: 32 MG, SINGLE
     Route: 058
     Dates: start: 202408

REACTIONS (6)
  - Encephalitis [Recovered/Resolved]
  - Meningitis [Recovered/Resolved]
  - Cytokine release syndrome [Recovered/Resolved]
  - Altered state of consciousness [Unknown]
  - Immune effector cell-associated neurotoxicity syndrome [Unknown]
  - Herpes zoster [Recovered/Resolved]

NARRATIVE: CASE EVENT DATE: 20240101
